FAERS Safety Report 12376219 (Version 2)
Quarter: 2016Q2

REPORT INFORMATION
  Report Type: Spontaneous
  Country: US (occurrence: US)
  Receive Date: 20160517
  Receipt Date: 20160518
  Transmission Date: 20160815
  Serious: No
  Sender: FDA-Public Use
  Company Number: US-BAYER-2016-094824

PATIENT
  Age: 69 Year
  Sex: Female
  Weight: 68.2 kg

DRUGS (4)
  1. CELEBREX [Concomitant]
     Active Substance: CELECOXIB
  2. TIZANIDINE. [Concomitant]
     Active Substance: TIZANIDINE
  3. MIRALAX [Suspect]
     Active Substance: POLYETHYLENE GLYCOL 3350
     Indication: CONSTIPATION
     Dosage: 1 DF, BID
     Route: 048
     Dates: start: 2012
  4. OXYCODONE [Concomitant]
     Active Substance: OXYCODONE

REACTIONS (3)
  - Product use issue [None]
  - Circumstance or information capable of leading to medication error [None]
  - Off label use [None]

NARRATIVE: CASE EVENT DATE: 2012
